FAERS Safety Report 9886367 (Version 2)
Quarter: 2014Q1

REPORT INFORMATION
  Report Type: Spontaneous
  Country: CZ (occurrence: CZ)
  Receive Date: 20140210
  Receipt Date: 20140314
  Transmission Date: 20141002
  Serious: Yes (Life-Threatening, Hospitalization, Disabling, Other)
  Sender: FDA-Public Use
  Company Number: CZ-ASTRAZENECA-2014SE07974

PATIENT
  Age: 17791 Day
  Sex: Male

DRUGS (8)
  1. MARCAINE [Suspect]
     Indication: EPIDURAL ANALGESIA
     Route: 040
     Dates: start: 20131004, end: 20131004
  2. MORPHINE [Concomitant]
     Indication: EPIDURAL ANALGESIA
     Route: 040
     Dates: start: 20131004
  3. MORPHINE [Concomitant]
     Indication: EPIDURAL ANALGESIA
     Route: 008
     Dates: start: 20131004, end: 20131004
  4. MORPHINE [Concomitant]
     Indication: EPIDURAL ANALGESIA
     Dosage: 0.125 MG/ML, 4-8 ML/H
     Route: 008
     Dates: start: 20131004
  5. FRAXIPARIN MULTI [Concomitant]
  6. FUROSEMID [Concomitant]
  7. KALIUM CHLORATUM [Concomitant]
  8. PERFALGAN [Concomitant]

REACTIONS (4)
  - Coma [Not Recovered/Not Resolved]
  - Brain stem syndrome [Not Recovered/Not Resolved]
  - Pulmonary embolism [Not Recovered/Not Resolved]
  - Cardiac arrest [Recovered/Resolved with Sequelae]
